FAERS Safety Report 10234775 (Version 2)
Quarter: 2014Q3

REPORT INFORMATION
  Report Type: Spontaneous
  Country: CA (occurrence: CA)
  Receive Date: 20140613
  Receipt Date: 20140912
  Transmission Date: 20150326
  Serious: Yes (Hospitalization)
  Sender: FDA-Public Use
  Company Number: CA-ALVOGEN-2014AL000846

PATIENT
  Age: 36 Year
  Sex: Female

DRUGS (1)
  1. MACROBID [Suspect]
     Active Substance: NITROFURANTOIN\NITROFURANTOIN MONOHYDRATE
     Indication: URINARY TRACT INFECTION
     Route: 048
     Dates: start: 20131209, end: 20131211

REACTIONS (13)
  - Blood alkaline phosphatase increased [Unknown]
  - Influenza like illness [Unknown]
  - Nausea [Unknown]
  - Gamma-glutamyltransferase increased [Unknown]
  - Headache [Unknown]
  - Alanine aminotransferase increased [Unknown]
  - Pain [Unknown]
  - Vomiting [Unknown]
  - Chromaturia [Unknown]
  - Aspartate aminotransferase increased [Unknown]
  - Pyrexia [Unknown]
  - Chills [Unknown]
  - Pollakiuria [Unknown]

NARRATIVE: CASE EVENT DATE: 20131211
